FAERS Safety Report 7698888-4 (Version None)
Quarter: 2011Q3

REPORT INFORMATION
  Report Type: 
  Country: None (occurrence: None)
  Receive Date: 20110818
  Receipt Date: 20110818
  Transmission Date: 20111222
  Serious: No
  Sender: FDA-Public Use
  Company Number: None

PATIENT
  Sex: Male
  Weight: 89.3586 kg

DRUGS (1)
  1. LEVAQUIN [Suspect]
     Dosage: 500 MG 1 DAILY P.O SEE ATTACHED NOTE
     Route: 048

REACTIONS (1)
  - TENDON RUPTURE [None]
